FAERS Safety Report 6958948-X (Version None)
Quarter: 2010Q3

REPORT INFORMATION
  Report Type: 
  Country: None (occurrence: None)
  Receive Date: 20100831
  Receipt Date: 20100827
  Transmission Date: 20110219
  Serious: Yes (Death, Hospitalization)
  Sender: FDA-Public Use
  Company Number: US-CELGENEUS-163-21880-10081239

PATIENT
  Sex: Male

DRUGS (2)
  1. REVLIMID [Suspect]
     Indication: MULTIPLE MYELOMA
     Route: 048
     Dates: start: 20100128
  2. REVLIMID [Suspect]
     Route: 048
     Dates: start: 20100304, end: 20100803

REACTIONS (2)
  - MALNUTRITION [None]
  - METABOLIC ENCEPHALOPATHY [None]
